FAERS Safety Report 9264359 (Version 1)
Quarter: 2013Q2

REPORT INFORMATION
  Report Type: Spontaneous
  Country: JP (occurrence: JP)
  Receive Date: 20130430
  Receipt Date: 20130430
  Transmission Date: 20140414
  Serious: Yes (Hospitalization)
  Sender: FDA-Public Use
  Company Number: JP-BAXTER-2013BAX015221

PATIENT
  Sex: Male
  Weight: 73 kg

DRUGS (2)
  1. DIANEAL-N PD-2 1.5 PD SOLUTION [Suspect]
     Indication: GLOMERULONEPHRITIS
     Route: 033
     Dates: start: 20110929
  2. EXTRANEAL PD SOLUTION [Suspect]
     Indication: GLOMERULONEPHRITIS
     Route: 033
     Dates: start: 20110929

REACTIONS (1)
  - Cerebral thrombosis [Recovering/Resolving]
